FAERS Safety Report 11180589 (Version 5)
Quarter: 2015Q4

REPORT INFORMATION
  Report Type: Spontaneous
  Country: US (occurrence: US)
  Receive Date: 20150611
  Receipt Date: 20151130
  Transmission Date: 20160304
  Serious: No
  Sender: FDA-Public Use
  Company Number: US-PFIZER INC-2015193826

PATIENT
  Age: 86 Year
  Sex: Female
  Weight: 52 kg

DRUGS (6)
  1. NITROSTAT [Suspect]
     Active Substance: NITROGLYCERIN
     Indication: ABDOMINAL DISCOMFORT
  2. NITROSTAT [Suspect]
     Active Substance: NITROGLYCERIN
     Indication: DYSKINESIA OESOPHAGEAL
     Dosage: 0.4 MG, AS NEEDED
     Route: 060
     Dates: start: 201201
  3. NITROSTAT [Suspect]
     Active Substance: NITROGLYCERIN
     Indication: OESOPHAGEAL SPASM
     Dosage: UNK
     Route: 060
  4. NITROSTAT [Suspect]
     Active Substance: NITROGLYCERIN
     Indication: CHEST PAIN
  5. NITROSTAT [Suspect]
     Active Substance: NITROGLYCERIN
     Indication: OESOPHAGEAL ACHALASIA
     Dosage: 0.4 MG, AS NEEDED
     Route: 060
     Dates: start: 1996
  6. NITROSTAT [Suspect]
     Active Substance: NITROGLYCERIN
     Indication: ANGINA PECTORIS
     Dosage: 0.4 MG, AS NEEDED (PLACE 1 TABLET BY TRANSLINGUAL ROUTE PRN)
     Route: 060
     Dates: start: 20120806

REACTIONS (6)
  - Paraesthesia [Unknown]
  - Drug ineffective for unapproved indication [Unknown]
  - Headache [Recovered/Resolved]
  - Vasodilatation [Unknown]
  - Somnolence [Unknown]
  - Expired product administered [Unknown]
